FAERS Safety Report 16595491 (Version 1)
Quarter: 2019Q3

REPORT INFORMATION
  Report Type: Spontaneous
  Country: US (occurrence: US)
  Receive Date: 20190605
  Receipt Date: 20190605
  Transmission Date: 20191004
  Serious: No
  Sender: FDA-Public Use
  Company Number: None

PATIENT
  Age: 76 Year
  Sex: Female

DRUGS (1)
  1. OCTREOTIDE PFS 100MCG/ML [Suspect]
     Active Substance: OCTREOTIDE ACETATE
     Dosage: OTHER STRENGTH 100MCG/ML
     Route: 058
     Dates: start: 20190406

REACTIONS (1)
  - Accidental overdose [None]

NARRATIVE: CASE EVENT DATE: 20190605
